FAERS Safety Report 6846340-8 (Version None)
Quarter: 2010Q3

REPORT INFORMATION
  Report Type: 
  Country: None (occurrence: None)
  Receive Date: 20100715
  Receipt Date: 20071013
  Transmission Date: 20110219
  Serious: No
  Sender: FDA-Public Use
  Company Number: US-PFIZER INC-2007077013

PATIENT
  Age: 61 Year
  Sex: Female
  Weight: 88.6 kg

DRUGS (4)
  1. CHANTIX [Suspect]
     Indication: SMOKING CESSATION THERAPY
     Dates: start: 20070901
  2. ANTIHYPERTENSIVES [Concomitant]
  3. DECONGESTANT [Concomitant]
  4. ALEVE (CAPLET) [Concomitant]
     Indication: MONARTHRITIS

REACTIONS (1)
  - PAIN IN EXTREMITY [None]
